FAERS Safety Report 5204436-0 (Version None)
Quarter: 2007Q1

REPORT INFORMATION
  Report Type: 
  Country: None (occurrence: None)
  Receive Date: 20070110
  Receipt Date: 20060324
  Transmission Date: 20070707
  Serious: No
  Sender: FDA-Public Use
  Company Number: US-BRISTOL-MYERS SQUIBB COMPANY-13326731

PATIENT
  Age: 76 Year
  Sex: Female
  Weight: 66 kg

DRUGS (7)
  1. ABILIFY [Suspect]
     Indication: DEMENTIA
     Dosage: INTERRUPTED X 3 DAYS, THEN REDUCED TO 2.5 MG DAILY ON 12-MAR-2006 AND CONTINUES
     Dates: start: 20051110
  2. ABILIFY [Suspect]
     Indication: PSYCHOTIC DISORDER
     Dosage: INTERRUPTED X 3 DAYS, THEN REDUCED TO 2.5 MG DAILY ON 12-MAR-2006 AND CONTINUES
     Dates: start: 20051110
  3. METOPROLOL SUCCINATE [Concomitant]
  4. COLACE [Concomitant]
  5. SINEMET [Concomitant]
  6. LASIX [Concomitant]
  7. PRILOSEC [Concomitant]

REACTIONS (2)
  - DYSPHAGIA [None]
  - DYSPHONIA [None]
